FAERS Safety Report 19925615 (Version 1)
Quarter: 2021Q4

REPORT INFORMATION
  Report Type: Spontaneous
  Country: CN (occurrence: CN)
  Receive Date: 20211006
  Receipt Date: 20211006
  Transmission Date: 20220304
  Serious: Yes (Hospitalization, Other)
  Sender: FDA-Public Use
  Company Number: CN-PFIZER INC-202101265871

PATIENT
  Age: 28 Year
  Sex: Female
  Weight: 80 kg

DRUGS (1)
  1. ZITHROMAX [Suspect]
     Active Substance: AZITHROMYCIN DIHYDRATE
     Indication: Infection prophylaxis
     Dosage: 0.5 G, 1X/DAY
     Route: 048
     Dates: start: 20210903, end: 20210903

REACTIONS (9)
  - Shock [Unknown]
  - Erythema [Unknown]
  - Pruritus [Unknown]
  - Discomfort [Unknown]
  - Dyspnoea [Unknown]
  - Rash erythematous [Unknown]
  - Hypotension [Unknown]
  - Heart rate increased [Unknown]
  - Vision blurred [Unknown]

NARRATIVE: CASE EVENT DATE: 20210903
